FAERS Safety Report 16847738 (Version 1)
Quarter: 2019Q3

REPORT INFORMATION
  Report Type: Spontaneous
  Country: US (occurrence: US)
  Receive Date: 20190924
  Receipt Date: 20190924
  Transmission Date: 20191005
  Serious: Yes (Hospitalization)
  Sender: FDA-Public Use
  Company Number: US-ACORDA-ACO_159707_2019

PATIENT
  Age: 84 Year
  Sex: Male

DRUGS (1)
  1. INBRIJA [Suspect]
     Active Substance: LEVODOPA
     Indication: PARKINSON^S DISEASE
     Dosage: 2 CAPSULES (84 MILLIGRAM TOTAL) UP TO FIVE TIMES PER DAY
     Dates: start: 201906

REACTIONS (6)
  - Throat irritation [Unknown]
  - Foreign body in respiratory tract [Unknown]
  - Adverse event [Unknown]
  - Incorrect dose administered [Unknown]
  - Cough [Unknown]
  - Dysgeusia [Unknown]

NARRATIVE: CASE EVENT DATE: 20190913
